FAERS Safety Report 24045889 (Version 1)
Quarter: 2024Q3

REPORT INFORMATION
  Report Type: Spontaneous
  Country: US (occurrence: US)
  Receive Date: 20240703
  Receipt Date: 20240703
  Transmission Date: 20241017
  Serious: Yes (Other)
  Sender: BRISTOL MYERS SQUIBB
  Company Number: US-BRISTOL-MYERS SQUIBB COMPANY-2024-104270

PATIENT
  Age: 72 Year
  Sex: Male
  Weight: 80.29 kg

DRUGS (2)
  1. ELIQUIS [Suspect]
     Active Substance: APIXABAN
     Indication: Product used for unknown indication
     Route: 048
     Dates: start: 20210811, end: 20240412
  2. ENTRESTO [Concomitant]
     Active Substance: SACUBITRIL\VALSARTAN
     Indication: Product used for unknown indication

REACTIONS (5)
  - Cardiac amyloidosis [Unknown]
  - Left ventricular hypertrophy [Unknown]
  - Diastolic dysfunction [Unknown]
  - Treatment noncompliance [Unknown]
  - Hypercoagulation [Unknown]
